FAERS Safety Report 7303901-X (Version None)
Quarter: 2011Q1

REPORT INFORMATION
  Report Type: 
  Country: None (occurrence: None)
  Receive Date: 20110221
  Receipt Date: 20110214
  Transmission Date: 20110831
  Serious: Yes (Other)
  Sender: FDA-Public Use
  Company Number: B0701063A

PATIENT
  Age: 58 Year
  Sex: Male

DRUGS (1)
  1. SORIATANE [Suspect]
     Dosage: 10MG PER DAY
     Route: 048
     Dates: start: 20040101, end: 20101001

REACTIONS (1)
  - VENTRICULAR TACHYCARDIA [None]
